FAERS Safety Report 22719592 (Version 2)
Quarter: 2023Q4

REPORT INFORMATION
  Report Type: Other
  Country: US (occurrence: US)
  Receive Date: 20230718
  Receipt Date: 20231120
  Transmission Date: 20240110
  Serious: No
  Sender: FDA-Public Use
  Company Number: US-UROVANT SCIENCES GMBH-202305-URV-000919

PATIENT
  Sex: Male
  Weight: 77.098 kg

DRUGS (16)
  1. GEMTESA [Suspect]
     Active Substance: VIBEGRON
     Indication: Hypertonic bladder
     Dosage: 75 MG, QD
     Route: 048
     Dates: start: 202304, end: 20230521
  2. ATORVASTATIN [Concomitant]
     Active Substance: ATORVASTATIN
     Indication: Product used for unknown indication
     Dosage: 10 MG, QD
     Route: 048
  3. CALCIUM [Concomitant]
     Active Substance: CALCIUM
     Indication: Product used for unknown indication
     Dosage: WITH D3 600 MG/20 MCG, QD
     Route: 065
  4. ACETAMINOPHEN\HYDROCODONE [Concomitant]
     Active Substance: ACETAMINOPHEN\HYDROCODONE
     Indication: Product used for unknown indication
     Dosage: HYDROCODONE 5-ACETAMINOPHEN 325MG, Q6H AS NEEDED
     Route: 048
  5. ACETAMINOPHEN\HYDROCODONE [Concomitant]
     Active Substance: ACETAMINOPHEN\HYDROCODONE
     Dosage: HYDROCODONE 10-ACETAMINOPHEN 325MG, Q6H 15 DAYS
     Route: 048
  6. ACETAMINOPHEN\HYDROCODONE [Concomitant]
     Active Substance: ACETAMINOPHEN\HYDROCODONE
     Dosage: HYDROCODONE 7.5-ACETAMINOPHEN 325MG, Q6H AS NEEDED
     Route: 048
  7. IBUPROFEN [Concomitant]
     Active Substance: IBUPROFEN
     Indication: Product used for unknown indication
     Dosage: 800 MG, Q8H
     Route: 048
  8. LISINOPRIL AND HYDROCHLOROTHIAZIDE [Concomitant]
     Active Substance: HYDROCHLOROTHIAZIDE\LISINOPRIL
     Indication: Product used for unknown indication
     Dosage: LISINOPRIL 10-HYDROCHLOROTHIAZIDE 12.5 MG, QD
     Route: 048
  9. ONDANSETRON [Concomitant]
     Active Substance: ONDANSETRON
     Indication: Product used for unknown indication
     Dosage: 4 MG, QID
     Route: 048
  10. RITONAVIR [Concomitant]
     Active Substance: RITONAVIR
     Indication: Product used for unknown indication
     Dosage: PAXLOVID 300 (150 MG X 2)-100 MG, UNK
     Route: 065
  11. SUPER B COMPLEX                    /01995301/ [Concomitant]
     Indication: Product used for unknown indication
     Dosage: 1 UNK, QD
     Route: 048
  12. TAMSULOSIN [Concomitant]
     Active Substance: TAMSULOSIN
     Indication: Product used for unknown indication
     Dosage: 0.4 MG, BID
     Route: 048
  13. TRAMADOL [Concomitant]
     Active Substance: TRAMADOL\TRAMADOL HYDROCHLORIDE
     Indication: Product used for unknown indication
     Dosage: 50 MG, QID
     Route: 048
  14. VITAMIN D3 [Concomitant]
     Active Substance: CHOLECALCIFEROL
     Indication: Product used for unknown indication
     Dosage: 1000 IU INTERNATIONAL UNIT(S), QD
     Route: 065
  15. SILDENAFIL [Concomitant]
     Active Substance: SILDENAFIL
     Indication: Erectile dysfunction
     Dosage: 100 MG, UNK
     Route: 048
  16. MULTIVITAMIN                       /00097801/ [Concomitant]
     Indication: Product used for unknown indication
     Dosage: UNK, QD
     Route: 048

REACTIONS (2)
  - Product availability issue [Unknown]
  - Inability to afford medication [Unknown]
